FAERS Safety Report 6635350-1 (Version None)
Quarter: 2010Q1

REPORT INFORMATION
  Report Type: 
  Country: None (occurrence: None)
  Receive Date: 20100315
  Receipt Date: 20100222
  Transmission Date: 20100710
  Serious: Yes (Life-Threatening, Hospitalization)
  Sender: FDA-Public Use
  Company Number: JP-SANOFI-AVENTIS-F01200800242

PATIENT
  Age: 70 Year
  Sex: Male
  Weight: 75 kg

DRUGS (19)
  1. OXALIPLATIN [Suspect]
     Indication: RECTAL CANCER METASTATIC
     Dosage: UNIT DOSE: 85 MG/M2
     Route: 042
     Dates: start: 20071212, end: 20071212
  2. FLUOROURACIL [Suspect]
     Indication: RECTAL CANCER METASTATIC
     Dosage: UNIT DOSE: 400 MG/M2
     Route: 042
     Dates: start: 20071212, end: 20071214
  3. CALCIUM LEVOFOLINATE [Suspect]
     Dosage: UNIT DOSE: 100 MG/M2
     Route: 042
     Dates: start: 20071212, end: 20071212
  4. BEVACIZUMAB [Suspect]
     Indication: RECTAL CANCER METASTATIC
     Dosage: UNIT DOSE: 5 MG/KG
     Route: 042
     Dates: start: 20071212, end: 20071212
  5. ADALAT CC [Concomitant]
     Dates: start: 20070910, end: 20071205
  6. RENIVACE [Concomitant]
     Dates: start: 20070910, end: 20071205
  7. AMARYL [Concomitant]
     Dates: start: 20070910, end: 20071205
  8. URINORM [Concomitant]
     Dates: start: 20070910, end: 20071205
  9. LIPITOR [Concomitant]
     Dates: start: 20070910, end: 20071205
  10. KYTRIL [Concomitant]
     Dates: start: 20071003, end: 20071212
  11. DECADRON [Concomitant]
     Dates: start: 20071003, end: 20071128
  12. DIOVAN [Concomitant]
     Dates: start: 20071128, end: 20071205
  13. ALDACTONE [Concomitant]
     Dosage: DOSE TEXT: UNK
     Dates: start: 20080226, end: 20080310
  14. ALDACTONE [Concomitant]
     Dosage: DOSE TEXT: UNK
     Dates: start: 20080320, end: 20080520
  15. ROHYPNOL [Concomitant]
     Dosage: DOSE TEXT: UNK
     Dates: start: 20080226, end: 20080309
  16. LASIX [Concomitant]
     Dosage: DOSE TEXT: UNK
     Dates: start: 20080226, end: 20080520
  17. CLARITH [Concomitant]
     Dosage: DOSE TEXT: UNK
     Dates: start: 20080321, end: 20080520
  18. THEO-DUR [Concomitant]
     Dosage: DOSE TEXT: UNK
     Dates: start: 20080321, end: 20080520
  19. MUCOSOLVAN [Concomitant]
     Dosage: DOSE TEXT: UNK
     Dates: start: 20080321, end: 20080520

REACTIONS (2)
  - ACUTE RESPIRATORY DISTRESS SYNDROME [None]
  - PYREXIA [None]
